FAERS Safety Report 4326666-2 (Version None)
Quarter: 2004Q1

REPORT INFORMATION
  Report Type: 
  Country: None (occurrence: None)
  Receive Date: 20040329
  Receipt Date: 20040329
  Transmission Date: 20041129
  Serious: Yes (Disabling, Other)
  Sender: FDA-Public Use
  Company Number: None

PATIENT
  Age: 88 Year
  Sex: Female
  Weight: 61.2356 kg

DRUGS (1)
  1. PRAVACHOL [Suspect]
     Dosage: 10 MG DAILY OTHER
     Dates: start: 20020302, end: 20031102

REACTIONS (3)
  - BURNING SENSATION [None]
  - CARDIAC FAILURE [None]
  - PNEUMONIA [None]
